FAERS Safety Report 14684874 (Version 2)
Quarter: 2018Q3

REPORT INFORMATION
  Report Type: Spontaneous
  Country: US (occurrence: US)
  Receive Date: 20180327
  Receipt Date: 20180927
  Transmission Date: 20181010
  Serious: No
  Sender: FDA-Public Use
  Company Number: US-CLOVIS ONCOLOGY-CLO-2018-000187

PATIENT
  Sex: Female

DRUGS (2)
  1. RUBRACA [Suspect]
     Active Substance: RUCAPARIB CAMSYLATE
     Indication: OVARIAN CANCER
     Dosage: 600 MG, BID
     Route: 048
     Dates: end: 201801
  2. RUBRACA [Suspect]
     Active Substance: RUCAPARIB CAMSYLATE
     Dosage: 1200 MG DAILY (4 TIMES A DAY)
     Route: 048
     Dates: start: 201712, end: 201808

REACTIONS (3)
  - Diarrhoea [Unknown]
  - Nausea [Unknown]
  - Infection [Unknown]

NARRATIVE: CASE EVENT DATE: 2018
